FAERS Safety Report 5777693-X (Version None)
Quarter: 2008Q2

REPORT INFORMATION
  Report Type: 
  Country: None (occurrence: None)
  Receive Date: 20080618
  Receipt Date: 20080611
  Transmission Date: 20081010
  Serious: Yes (Other)
  Sender: FDA-Public Use
  Company Number: US-BOEHRINGER INGELHEIM GMBH, GERMANY-2008-BP-09304RO

PATIENT
  Age: 26 Year
  Sex: Male

DRUGS (4)
  1. METHOTREXATE [Suspect]
     Indication: PSORIASIS
  2. ACITRETIN [Suspect]
     Indication: PSORIASIS
  3. STEROIDS [Concomitant]
     Indication: PSORIASIS
     Route: 061
  4. TACROLIMUS [Concomitant]
     Indication: PSORIASIS
     Route: 061

REACTIONS (1)
  - CHEILITIS [None]
